FAERS Safety Report 6884010-0 (Version None)
Quarter: 2010Q3

REPORT INFORMATION
  Report Type: 
  Country: None (occurrence: None)
  Receive Date: 20100729
  Receipt Date: 20100715
  Transmission Date: 20110219
  Serious: Yes (Other)
  Sender: FDA-Public Use
  Company Number: PHHY2010US46782

PATIENT
  Sex: Female

DRUGS (6)
  1. RECLAST [Suspect]
  2. DIGOXIN [Concomitant]
     Dosage: ONCE A DAY
  3. PANTOPRAZOLE [Concomitant]
  4. WATER PILLS [Concomitant]
  5. ZOCOR [Concomitant]
  6. SYMBICORT [Suspect]

REACTIONS (2)
  - INSOMNIA [None]
  - MEMORY IMPAIRMENT [None]
